FAERS Safety Report 4363829-4 (Version None)
Quarter: 2004Q2

REPORT INFORMATION
  Report Type: 
  Country: None (occurrence: None)
  Receive Date: 20040512
  Receipt Date: 20040430
  Transmission Date: 20050107
  Serious: Yes (Death, Hospitalization)
  Sender: FDA-Public Use
  Company Number: RED / 04 / 01/ SCH

PATIENT
  Age: 18 Year
  Sex: Male
  Weight: 48 kg

DRUGS (4)
  1. REDIMUNE (IMMUNOGLOBULIN HUMAN NORMAL) [Suspect]
     Indication: AMYOTROPHIC LATERAL SCLEROSIS
     Dosage: 18 G, I.V. INF.
     Route: 042
     Dates: start: 20040115, end: 20040116
  2. DOSPIR (COMBIVENT) [Concomitant]
  3. RILUTEK [Concomitant]
  4. FRAGMIN [Concomitant]

REACTIONS (4)
  - CARDIAC ARREST [None]
  - CARDIAC FAILURE [None]
  - INFUSION RELATED REACTION [None]
  - TACHYCARDIA [None]
